FAERS Safety Report 4956791-4 (Version None)
Quarter: 2006Q1

REPORT INFORMATION
  Report Type: 
  Country: None (occurrence: None)
  Receive Date: 20060127
  Receipt Date: 20050616
  Transmission Date: 20060701
  Serious: Yes (Death)
  Sender: FDA-Public Use
  Company Number: 05-06-1054

PATIENT
  Age: 33 Year
  Sex: Female

DRUGS (9)
  1. CLOZAPINE [Suspect]
     Dosage: 650 MG QD ORAL
     Route: 048
     Dates: start: 20001115, end: 20050501
  2. MULTIVITAMIN [Concomitant]
  3. TOPAMAX [Concomitant]
  4. GLIPIZIDE [Concomitant]
  5. PRILOSEC [Concomitant]
  6. LEVOXYL (LEVOTHROXINE SODIUM) (TABLETS) [Concomitant]
  7. FERROUS SULFATE TAB [Concomitant]
  8. CLOMIOPRAMINE (CLOMIPRAMINE) [Concomitant]
  9. RISPERDAL [Concomitant]

REACTIONS (1)
  - UNEVALUABLE EVENT [None]
